FAERS Safety Report 13612134 (Version 1)
Quarter: 2017Q2

REPORT INFORMATION
  Report Type: Spontaneous
  Country: US (occurrence: US)
  Receive Date: 20170605
  Receipt Date: 20170605
  Transmission Date: 20170830
  Serious: Yes (Hospitalization)
  Sender: FDA-Public Use
  Company Number: None

PATIENT
  Sex: Female
  Weight: 53 kg

DRUGS (9)
  1. VIEKIRAX (OMBITASVIR, PARITAPREVIR, RITONAVIR) [Suspect]
     Active Substance: OMBITASVIR\PARITAPREVIR\RITONAVIR
     Indication: HEPATITIS C
     Dosage: 12.5 MG /75 MG /50 MG DAILY P.O.
     Route: 048
     Dates: start: 20170207, end: 20170502
  2. L-THYROXIN [Concomitant]
     Active Substance: LEVOTHYROXINE SODIUM
  3. ACYCLOVIR. [Concomitant]
     Active Substance: ACYCLOVIR
  4. PANTOPRAZOL [Concomitant]
     Active Substance: PANTOPRAZOLE SODIUM
  5. EXVIERA 250 MG [Suspect]
     Active Substance: DASABUVIR
     Indication: HEPATITIS C
     Route: 048
     Dates: start: 20170207, end: 20170502
  6. PREDNISONE. [Concomitant]
     Active Substance: PREDNISONE
  7. TACROLIMUS. [Concomitant]
     Active Substance: TACROLIMUS
  8. ROCALTROL [Concomitant]
     Active Substance: CALCITRIOL
  9. LAMIVUDINE. [Concomitant]
     Active Substance: LAMIVUDINE

REACTIONS (1)
  - Genital herpes simplex [None]

NARRATIVE: CASE EVENT DATE: 20170413
